FAERS Safety Report 12059121 (Version 1)
Quarter: 2016Q1

REPORT INFORMATION
  Report Type: Spontaneous
  Country: US (occurrence: None)
  Receive Date: 20160209
  Receipt Date: 20160209
  Transmission Date: 20160526
  Serious: Yes (Other)
  Sender: FDA-Public Use
  Company Number: None

PATIENT
  Sex: Female

DRUGS (4)
  1. ZYRTEC [Suspect]
     Active Substance: CETIRIZINE HYDROCHLORIDE
     Indication: COUGH
     Dosage: 2 PILLS A DAY TWICE DAILY
     Dates: start: 20150601, end: 20160204
  2. ZYRTEC [Suspect]
     Active Substance: CETIRIZINE HYDROCHLORIDE
     Indication: UPPER-AIRWAY COUGH SYNDROME
     Dosage: 2 PILLS A DAY TWICE DAILY
     Dates: start: 20150601, end: 20160204
  3. INHALER [Concomitant]
     Active Substance: UNSPECIFIED INGREDIENT
  4. PRILOSEC [Concomitant]
     Active Substance: OMEPRAZOLE MAGNESIUM

REACTIONS (2)
  - Withdrawal syndrome [None]
  - Pruritus generalised [None]

NARRATIVE: CASE EVENT DATE: 20150601
